FAERS Safety Report 7569148-7 (Version None)
Quarter: 2011Q2

REPORT INFORMATION
  Report Type: 
  Country: None (occurrence: None)
  Receive Date: 20110623
  Receipt Date: 20110610
  Transmission Date: 20111010
  Serious: Yes (Other)
  Sender: FDA-Public Use
  Company Number: PHFR2011IE01077

PATIENT
  Sex: Male

DRUGS (3)
  1. RISPERIDONE [Concomitant]
     Dosage: 6 MG, QD
     Route: 048
  2. CLOZAPINE [Suspect]
     Indication: SCHIZOPHRENIA
     Dosage: 100 MG BID
     Route: 048
     Dates: start: 20110117, end: 20110202
  3. RISPERIDONE [Concomitant]
     Dosage: 3 MG, QD
     Route: 048

REACTIONS (3)
  - ORTHOSTATIC HYPOTENSION [None]
  - DRUG INTOLERANCE [None]
  - DIZZINESS [None]
